FAERS Safety Report 6758065-8 (Version None)
Quarter: 2010Q2

REPORT INFORMATION
  Report Type: 
  Country: None (occurrence: None)
  Receive Date: 20100607
  Receipt Date: 20100521
  Transmission Date: 20101027
  Serious: Yes (Other)
  Sender: FDA-Public Use
  Company Number: PHFR2010IE00725

PATIENT
  Sex: Female

DRUGS (4)
  1. CLOZARIL [Suspect]
     Indication: SCHIZOPHRENIA
     Dosage: 12.5 MG, UNK
     Dates: start: 20100519
  2. CLOZARIL [Suspect]
     Dosage: 12.5 MG, BID
     Dates: start: 20100520
  3. CLOZARIL [Suspect]
     Dosage: 12.5 MG, UNK
     Dates: start: 20100521
  4. AMISULPRIDE [Concomitant]

REACTIONS (5)
  - CIRCULATORY COLLAPSE [None]
  - FATIGUE [None]
  - ORTHOSTATIC HYPOTENSION [None]
  - POSTURAL ORTHOSTATIC TACHYCARDIA SYNDROME [None]
  - SYNCOPE [None]
